FAERS Safety Report 10234222 (Version 1)
Quarter: 2014Q2

REPORT INFORMATION
  Report Type: Spontaneous
  Country: US (occurrence: US)
  Receive Date: 20140612
  Receipt Date: 20140612
  Transmission Date: 20141212
  Serious: No
  Sender: FDA-Public Use
  Company Number: US-009507513-1406USA000374

PATIENT
  Age: 41 Year
  Sex: Female

DRUGS (1)
  1. PEGINTRON [Suspect]
     Dosage: REDIPEN, UNKNOWN
     Route: 065

REACTIONS (5)
  - Pain [Unknown]
  - Nausea [Unknown]
  - Dizziness [Unknown]
  - Drug dose omission [Unknown]
  - Product quality issue [Unknown]
